FAERS Safety Report 8397147-4 (Version None)
Quarter: 2012Q2

REPORT INFORMATION
  Report Type: 
  Country: None (occurrence: None)
  Receive Date: 20120530
  Receipt Date: 20110411
  Transmission Date: 20120825
  Serious: No
  Sender: FDA-Public Use
  Company Number: US-NOVEN-11US002246

PATIENT
  Sex: Male
  Weight: 19.048 kg

DRUGS (2)
  1. NONE [Concomitant]
  2. DAYTRANA [Suspect]
     Indication: ATTENTION DEFICIT/HYPERACTIVITY DISORDER
     Dosage: UNK, 1X/DAY:QD
     Route: 062
     Dates: start: 20080401

REACTIONS (5)
  - GROWTH RETARDATION [None]
  - BOWEL MOVEMENT IRREGULARITY [None]
  - DECREASED APPETITE [None]
  - AGITATION [None]
  - ALOPECIA [None]
